FAERS Safety Report 8122384-3 (Version None)
Quarter: 2012Q1

REPORT INFORMATION
  Report Type: 
  Country: None (occurrence: None)
  Receive Date: 20120208
  Receipt Date: 20120206
  Transmission Date: 20120608
  Serious: Yes (Death)
  Sender: FDA-Public Use
  Company Number: US-GLAXOSMITHKLINE-A0962991A

PATIENT
  Age: 78 Year
  Sex: Male

DRUGS (6)
  1. PAROXETINE HCL [Suspect]
     Indication: PRODUCT USED FOR UNKNOWN INDICATION
     Dosage: 20MG UNKNOWN
     Route: 048
     Dates: start: 20111101
  2. FUROSEMIDE [Concomitant]
  3. TRAZODONE HCL [Concomitant]
  4. FAMOTIDINE [Concomitant]
  5. ZOLPIDEM [Concomitant]
  6. LUMIGAN [Concomitant]

REACTIONS (2)
  - COMPLETED SUICIDE [None]
  - GUN SHOT WOUND [None]
